FAERS Safety Report 11620221 (Version 1)
Quarter: 2015Q4

REPORT INFORMATION
  Report Type: Spontaneous
  Country: US (occurrence: US)
  Receive Date: 20151012
  Receipt Date: 20151012
  Transmission Date: 20160304
  Serious: No
  Sender: FDA-Public Use
  Company Number: US-BAYER-2015-441741

PATIENT
  Sex: Female

DRUGS (3)
  1. FLONASE [Suspect]
     Active Substance: FLUTICASONE PROPIONATE
  2. CLARITIN [Suspect]
     Active Substance: LORATADINE
     Route: 048
  3. S-ADENOSYLMETHIONINE SULFATE P-TOLUENESULFONATE [Suspect]
     Active Substance: ADEMETIONINE SULFATE TOSILATE

REACTIONS (2)
  - Anxiety [Unknown]
  - Feeling jittery [Unknown]
